APPROVED DRUG PRODUCT: DEFERASIROX
Active Ingredient: DEFERASIROX
Strength: 360MG
Dosage Form/Route: TABLET;ORAL
Application: A211641 | Product #002
Applicant: SUN PHARMACEUTICAL INDUSTRIES LTD
Approved: Jan 2, 2020 | RLD: No | RS: No | Type: DISCN